FAERS Safety Report 4569514-8 (Version None)
Quarter: 2005Q1

REPORT INFORMATION
  Report Type: 
  Country: None (occurrence: None)
  Receive Date: 20050203
  Receipt Date: 20050126
  Transmission Date: 20050727
  Serious: Yes (Other)
  Sender: FDA-Public Use
  Company Number: BR-JNJFOC-20050107228

PATIENT
  Age: 48 Year
  Sex: Female
  Weight: 56 kg

DRUGS (3)
  1. TOPAMAX [Suspect]
     Route: 049
  2. TOPAMAX [Suspect]
     Indication: OBSESSIVE-COMPULSIVE DISORDER
     Route: 049
  3. VERAPAMIL [Concomitant]

REACTIONS (8)
  - ACCIDENTAL OVERDOSE [None]
  - DYSGEUSIA [None]
  - HYPOAESTHESIA ORAL [None]
  - LOSS OF CONSCIOUSNESS [None]
  - MEMORY IMPAIRMENT [None]
  - PARAESTHESIA [None]
  - RESPIRATORY DISTRESS [None]
  - VISION BLURRED [None]
